FAERS Safety Report 8366454-3 (Version None)
Quarter: 2012Q2

REPORT INFORMATION
  Report Type: 
  Country: None (occurrence: None)
  Receive Date: 20120517
  Receipt Date: 20120510
  Transmission Date: 20120825
  Serious: Yes (Hospitalization, Other)
  Sender: FDA-Public Use
  Company Number: US-BAYER-2011-073181

PATIENT
  Age: 36 Year
  Sex: Female
  Weight: 43.537 kg

DRUGS (3)
  1. YAZ [Suspect]
     Indication: CONTRACEPTION
     Dosage: UNK
     Dates: start: 20080501, end: 20090401
  2. CEFUROXIME [Concomitant]
     Dosage: UNK
     Dates: start: 20080601
  3. HYDROCODONE BITARTRATE AND ACETAMINOPHEN [Concomitant]
     Dosage: 5/500 MG
     Route: 048
     Dates: start: 20080605

REACTIONS (6)
  - DYSPNOEA [None]
  - CHEST PAIN [None]
  - PULMONARY EMBOLISM [None]
  - PNEUMONIA [None]
  - BACK PAIN [None]
  - EMOTIONAL DISTRESS [None]
